FAERS Safety Report 4793742-X (Version None)
Quarter: 2005Q4

REPORT INFORMATION
  Report Type: 
  Country: None (occurrence: None)
  Receive Date: 20051011
  Receipt Date: 20050928
  Transmission Date: 20060501
  Serious: Yes (Other)
  Sender: FDA-Public Use
  Company Number: PHBS2005JP14450

PATIENT
  Age: 70 Year
  Sex: Male
  Weight: 86 kg

DRUGS (7)
  1. LAMISIL [Suspect]
     Indication: NAIL TINEA
     Dosage: 125 MG/D
     Route: 048
     Dates: start: 20050601, end: 20050711
  2. MAINTATE [Concomitant]
     Indication: HYPERTENSION
     Dosage: 5 MG/DAY
     Route: 048
     Dates: start: 19991124
  3. LANDEL [Concomitant]
     Indication: HYPERTENSION
     Dosage: 40 MG/DAY
     Route: 048
  4. NATRIX [Concomitant]
     Indication: HYPERTENSION
     Dosage: 2 MG/DAY
     Route: 048
     Dates: start: 20030215
  5. NU LOTAN [Concomitant]
     Indication: HYPERTENSION
     Dosage: 25 MG/D
     Route: 048
     Dates: start: 20030714
  6. ALDACTONE [Concomitant]
     Indication: CARDIAC FAILURE CHRONIC
     Dosage: 25 MG/DAY
     Route: 048
     Dates: start: 20020206
  7. DIGOSIN [Concomitant]
     Indication: CARDIAC FAILURE CHRONIC
     Dosage: 0.25 MG/D
     Route: 048
     Dates: start: 20000913

REACTIONS (11)
  - ALANINE AMINOTRANSFERASE INCREASED [None]
  - ASPARTATE AMINOTRANSFERASE INCREASED [None]
  - BLOOD CREATINE PHOSPHOKINASE INCREASED [None]
  - BLOOD CREATINE PHOSPHOKINASE MM INCREASED [None]
  - DISCOMFORT [None]
  - HEPATIC FUNCTION ABNORMAL [None]
  - MALAISE [None]
  - MYOGLOBIN BLOOD INCREASED [None]
  - NECK PAIN [None]
  - RHABDOMYOLYSIS [None]
  - SHOULDER PAIN [None]
